FAERS Safety Report 23553656 (Version 2)
Quarter: 2024Q1

REPORT INFORMATION
  Report Type: Spontaneous
  Country: US (occurrence: US)
  Receive Date: 20240222
  Receipt Date: 20240314
  Transmission Date: 20240410
  Serious: No
  Sender: FDA-Public Use
  Company Number: US-Calliditas-2024CAL00196

PATIENT
  Age: 33 Year
  Sex: Male

DRUGS (10)
  1. TARPEYO [Suspect]
     Active Substance: BUDESONIDE
     Indication: IgA nephropathy
     Dosage: 16 MG (4 MG CAPSULES) ONCE DAILY
     Route: 048
     Dates: start: 20231122
  2. ALLOPURINOL [Concomitant]
     Active Substance: ALLOPURINOL
  3. FAMOTIDINE [Concomitant]
     Active Substance: FAMOTIDINE
  4. TRULICITY [Concomitant]
     Active Substance: DULAGLUTIDE
  5. NIFEDIPINE [Concomitant]
     Active Substance: NIFEDIPINE
  6. LOSARTAN [Concomitant]
     Active Substance: LOSARTAN
  7. FARXIGA [Concomitant]
     Active Substance: DAPAGLIFLOZIN PROPANEDIOL
  8. ATORVASTATIN [Concomitant]
     Active Substance: ATORVASTATIN
  9. UP+UP MEN^S DAILY MULTIVITAMIN [Concomitant]
  10. UP+UP FIBER GUMMIES [Concomitant]

REACTIONS (1)
  - Increased appetite [Recovered/Resolved]

NARRATIVE: CASE EVENT DATE: 20240109
